FAERS Safety Report 18564834 (Version 1)
Quarter: 2020Q4

REPORT INFORMATION
  Report Type: Report from Study
  Country: GB (occurrence: GB)
  Receive Date: 20201201
  Receipt Date: 20201201
  Transmission Date: 20210114
  Serious: Yes (Death, Other)
  Sender: FDA-Public Use
  Company Number: GB-PFIZER INC-2020472815

PATIENT
  Age: 71 Year
  Sex: Female

DRUGS (3)
  1. FRUSEMIDE [FUROSEMIDE SODIUM] [Suspect]
     Active Substance: FUROSEMIDE SODIUM
     Dosage: 160 MG, DAILY
  2. SPIRONOLACTONE. [Suspect]
     Active Substance: SPIRONOLACTONE
     Dosage: 75 MG, DAILY
  3. ENALAPRIL [Suspect]
     Active Substance: ENALAPRIL
     Indication: CARDIAC FAILURE
     Dosage: 20 MG, DAILY

REACTIONS (1)
  - Renal impairment [Fatal]
